FAERS Safety Report 5308925-X (Version None)
Quarter: 2007Q2

REPORT INFORMATION
  Report Type: 
  Country: None (occurrence: None)
  Receive Date: 20070426
  Receipt Date: 20070414
  Transmission Date: 20071010
  Serious: Yes (Disabling, Other)
  Sender: FDA-Public Use
  Company Number: US-PFIZER INC-2007002191

PATIENT
  Sex: Female

DRUGS (2)
  1. LYRICA [Suspect]
     Indication: DIABETIC NEUROPATHY
  2. LYRICA [Suspect]

REACTIONS (7)
  - ARTHROPATHY [None]
  - DIABETIC NEUROPATHY [None]
  - MUSCLE DISORDER [None]
  - PAIN [None]
  - PATELLOFEMORAL PAIN SYNDROME [None]
  - PERIARTHRITIS [None]
  - SWELLING [None]
